FAERS Safety Report 8251066-2 (Version None)
Quarter: 2012Q2

REPORT INFORMATION
  Report Type: 
  Country: None (occurrence: None)
  Receive Date: 20120402
  Receipt Date: 20120321
  Transmission Date: 20120825
  Serious: Yes (Other)
  Sender: FDA-Public Use
  Company Number: PHHY2012BR025175

PATIENT
  Age: 45 Year
  Sex: Female

DRUGS (2)
  1. EXFORGE [Suspect]
     Indication: HYPERTENSION
     Dosage: 1 DF DAILY
     Dates: start: 20090101, end: 20100101
  2. EXFORGE [Suspect]
     Dosage: 320 MG VALSARTAN AND 10 MG AMLODIPINE
     Dates: start: 20120201

REACTIONS (3)
  - NEPHRITIS [None]
  - BLOOD PRESSURE INCREASED [None]
  - SYSTEMIC LUPUS ERYTHEMATOSUS [None]
